FAERS Safety Report 5171842-2 (Version None)
Quarter: 2006Q4

REPORT INFORMATION
  Report Type: 
  Country: None (occurrence: None)
  Receive Date: 20061205
  Receipt Date: 20060314
  Transmission Date: 20070319
  Serious: Yes (Hospitalization)
  Sender: FDA-Public Use
  Company Number: 2006VX000300

PATIENT
  Age: 72 Year
  Sex: Male
  Weight: 60.3284 kg

DRUGS (9)
  1. INTERFERON ALFACON-1 [Suspect]
     Indication: HEPATITIS C
     Dosage: 9 UG; SC
     Route: 058
     Dates: start: 20051130, end: 20060221
  2. ARANESP [Concomitant]
  3. SYNTHROID [Concomitant]
  4. LACTULOSE [Concomitant]
  5. VITAMIN CAP [Concomitant]
  6. CALCIUM [Concomitant]
  7. VITAMIN B-12 [Concomitant]
  8. MAGNESIUM [Concomitant]
  9. ZINC [Concomitant]

REACTIONS (3)
  - AMMONIA INCREASED [None]
  - CONFUSIONAL STATE [None]
  - DEHYDRATION [None]
